FAERS Safety Report 6184886-9 (Version None)
Quarter: 2009Q2

REPORT INFORMATION
  Report Type: 
  Country: None (occurrence: None)
  Receive Date: 20090509
  Receipt Date: 20090428
  Transmission Date: 20091009
  Serious: Yes (Disabling, Other)
  Sender: FDA-Public Use
  Company Number: GB-ELI_LILLY_AND_COMPANY-GB200904006547

PATIENT
  Age: 60 Year
  Sex: Female
  Weight: 59.1 kg

DRUGS (2)
  1. RALOXIFENE HYDROCHLORIDE [Suspect]
     Indication: OSTEOPOROSIS
     Dosage: 60 MG, UNK
     Route: 048
     Dates: start: 20090317, end: 20090325
  2. CALCICHEW D3 [Concomitant]
     Indication: OSTEOPOROSIS
     Dosage: 1 D/F, UNK
     Route: 048
     Dates: start: 20090209

REACTIONS (2)
  - ARTHROPATHY [None]
  - JOINT SWELLING [None]
